FAERS Safety Report 10879698 (Version 4)
Quarter: 2015Q2

REPORT INFORMATION
  Report Type: Report from Study
  Country: IE (occurrence: IE)
  Receive Date: 20150302
  Receipt Date: 20150413
  Transmission Date: 20150821
  Serious: Yes (Hospitalization)
  Sender: FDA-Public Use
  Company Number: US-ASTRAZENECA-2015SE18495

PATIENT
  Age: 91 Day
  Sex: Female
  Weight: 4.8 kg

DRUGS (1)
  1. SYNAGIS [Suspect]
     Active Substance: PALIVIZUMAB
     Indication: HEART DISEASE CONGENITAL
     Route: 030
     Dates: start: 20141121, end: 201502

REACTIONS (2)
  - Upper respiratory tract infection [Recovered/Resolved]
  - Nasal obstruction [Unknown]

NARRATIVE: CASE EVENT DATE: 20150202
